FAERS Safety Report 25367457 (Version 1)
Quarter: 2025Q2

REPORT INFORMATION
  Report Type: Spontaneous
  Country: TR (occurrence: TR)
  Receive Date: 20250528
  Receipt Date: 20250528
  Transmission Date: 20250716
  Serious: Yes (Hospitalization, Other)
  Sender: EXELA PHARMA SCIENCES
  Company Number: TR-EXELAPHARMA-2025EXLA00093

PATIENT
  Age: 34 Year
  Sex: Male
  Weight: 97 kg

DRUGS (3)
  1. MIDAZOLAM [Suspect]
     Active Substance: MIDAZOLAM
     Indication: Myoclonic dystonia
  2. BUPIVACAINE [Concomitant]
     Active Substance: BUPIVACAINE
     Route: 037
  3. MORPHINE [Concomitant]
     Active Substance: MORPHINE
     Route: 037

REACTIONS (1)
  - Drug ineffective for unapproved indication [Unknown]
